FAERS Safety Report 4831115-1 (Version None)
Quarter: 2005Q4

REPORT INFORMATION
  Report Type: 
  Country: None (occurrence: None)
  Receive Date: 20051114
  Receipt Date: 20051104
  Transmission Date: 20060501
  Serious: Yes (Hospitalization)
  Sender: FDA-Public Use
  Company Number: A-CH2005-10330

PATIENT
  Age: 60 Year
  Sex: Male
  Weight: 89 kg

DRUGS (5)
  1. TRACLEER [Suspect]
     Indication: PULMONARY HYPERTENSION
     Dosage: 125 MG BID ORAL
     Route: 048
     Dates: start: 20030612, end: 20050327
  2. CARVEDILOL [Concomitant]
  3. ATORVASTATIN CALCIUM [Concomitant]
  4. PLAVIX [Concomitant]
  5. CAPOZIDE 25/15 [Concomitant]

REACTIONS (2)
  - HEART TRANSPLANT [None]
  - OFF LABEL USE [None]
